FAERS Safety Report 10013053 (Version 1)
Quarter: 2014Q1

REPORT INFORMATION
  Report Type: Spontaneous
  Country: US (occurrence: US)
  Receive Date: 20140314
  Receipt Date: 20140314
  Transmission Date: 20141002
  Serious: No
  Sender: FDA-Public Use
  Company Number: US-PFIZER INC-2014072609

PATIENT
  Age: 61 Year
  Sex: Male
  Weight: 96.2 kg

DRUGS (2)
  1. GENOTROPIN MQ [Suspect]
     Indication: HORMONE REPLACEMENT THERAPY
     Dosage: 0.2 MG, ALTERNATE DAY
     Dates: start: 1999
  2. ANDROGEL [Suspect]
     Indication: HORMONE REPLACEMENT THERAPY
     Dosage: UNK

REACTIONS (1)
  - Weight increased [Unknown]
